FAERS Safety Report 9495473 (Version 4)
Quarter: 2014Q1

REPORT INFORMATION
  Report Type: Spontaneous
  Country: US (occurrence: US)
  Receive Date: 20130903
  Receipt Date: 20140314
  Transmission Date: 20141002
  Serious: Yes (Hospitalization, Other)
  Sender: FDA-Public Use
  Company Number: US-BAYER-2013-105157

PATIENT
  Age: 21 Year
  Sex: Female
  Weight: 56.69 kg

DRUGS (1)
  1. MIRENA [Suspect]
     Indication: CONTRACEPTION
     Dosage: 20 MCG/24HR, CONT
     Route: 015
     Dates: start: 20080115, end: 20100122

REACTIONS (9)
  - Uterine perforation [None]
  - Vaginal haemorrhage [None]
  - Device difficult to use [None]
  - Injury [None]
  - Pelvic pain [None]
  - Medical device pain [None]
  - Infection [None]
  - Emotional distress [None]
  - Menorrhagia [None]
